FAERS Safety Report 8810683 (Version 1)
Quarter: 2012Q4

REPORT INFORMATION
  Report Type: Spontaneous
  Country: US (occurrence: None)
  Receive Date: 20120924
  Receipt Date: 20120924
  Transmission Date: 20130627
  Serious: Yes (Other)
  Sender: FDA-Public Use
  Company Number: None

PATIENT
  Age: 78 Year
  Sex: Male
  Weight: 80.74 kg

DRUGS (9)
  1. ONDANSETRON HYDROCHLORIDE [Suspect]
     Indication: PROPHYLAXIS AGAINST CHEMOTHERAPY INDUCED VOMITING
     Dosage: 1 8 mg tablet once sl
     Route: 060
     Dates: start: 20120923, end: 20120923
  2. FENTANYL [Concomitant]
  3. OXYCONTIN [Concomitant]
  4. LYRICA [Concomitant]
  5. CYMBALTA [Concomitant]
  6. NEXIUM [Concomitant]
  7. TRAZADONE [Concomitant]
  8. NEULASTA [Concomitant]
  9. PREDNISONE [Concomitant]

REACTIONS (1)
  - Heart rate increased [None]
